FAERS Safety Report 24580021 (Version 4)
Quarter: 2025Q1

REPORT INFORMATION
  Report Type: Spontaneous
  Country: JP (occurrence: JP)
  Receive Date: 20241105
  Receipt Date: 20250108
  Transmission Date: 20250409
  Serious: No
  Sender: PFIZER
  Company Number: JP-PFIZER INC-PV202400139342

PATIENT
  Age: 52 Year
  Sex: Female
  Weight: 47.1 kg

DRUGS (1)
  1. ENBREL [Suspect]
     Active Substance: ETANERCEPT
     Indication: Rheumatoid arthritis
     Dosage: 50 MG, ONCE A WEEK
     Route: 058
     Dates: start: 20230519

REACTIONS (3)
  - Injection site haemorrhage [Recovered/Resolved]
  - Injection site pain [Unknown]
  - Intentional product misuse [Unknown]

NARRATIVE: CASE EVENT DATE: 20241028
